FAERS Safety Report 19179459 (Version 1)
Quarter: 2021Q2

REPORT INFORMATION
  Report Type: Spontaneous
  Country: US (occurrence: US)
  Receive Date: 20210423
  Receipt Date: 20210423
  Transmission Date: 20210717
  Serious: No
  Sender: FDA-Public Use
  Company Number: None

PATIENT
  Sex: Female

DRUGS (3)
  1. INVEGA SUSTENNA [Suspect]
     Active Substance: PALIPERIDONE PALMITATE
     Indication: BIPOLAR DISORDER
     Dosage: ?          OTHER FREQUENCY:EVERY 4 WEEKS;?
     Route: 030
  2. METRONIDAZOL 500MG [Concomitant]
     Active Substance: METRONIDAZOLE
     Dates: start: 20210415
  3. CEPHALEXIN 500MG [Concomitant]
     Active Substance: CEPHALEXIN
     Dates: start: 20210415

REACTIONS (2)
  - Treatment noncompliance [None]
  - Off label use [None]
